FAERS Safety Report 10758109 (Version 1)
Quarter: 2015Q1

REPORT INFORMATION
  Report Type: Spontaneous
  Country: US (occurrence: None)
  Receive Date: 20150202
  Receipt Date: 20150202
  Transmission Date: 20150721
  Serious: Yes (Hospitalization)
  Sender: FDA-Public Use
  Company Number: None

PATIENT
  Age: 79 Year
  Sex: Female
  Weight: 70.76 kg

DRUGS (12)
  1. TRICOR [Concomitant]
     Active Substance: FENOFIBRATE
  2. COREG [Concomitant]
     Active Substance: CARVEDILOL
  3. MICARDIS [Concomitant]
     Active Substance: TELMISARTAN
  4. VYTORIN [Concomitant]
     Active Substance: EZETIMIBE\SIMVASTATIN
  5. KETEX [Concomitant]
  6. TOVIAZ [Suspect]
     Active Substance: FESOTERODINE FUMARATE
     Dosage: 1 PILL DAILY
     Route: 048
     Dates: start: 20141018, end: 20141113
  7. GLIPIZIDE. [Concomitant]
     Active Substance: GLIPIZIDE
  8. INSULIN [Concomitant]
     Active Substance: INSULIN NOS
  9. PLAVIX [Concomitant]
     Active Substance: CLOPIDOGREL BISULFATE
  10. THYROID [Concomitant]
     Active Substance: LEVOTHYROXINE\LIOTHYRONINE
  11. BLADDER SLING [Concomitant]
  12. ASPIRIN. [Concomitant]
     Active Substance: ASPIRIN

REACTIONS (6)
  - Pain [None]
  - Abdominal pain upper [None]
  - Gastric disorder [None]
  - Crying [None]
  - Urinary retention [None]
  - Haemorrhage [None]

NARRATIVE: CASE EVENT DATE: 20141113
